FAERS Safety Report 6867914-4 (Version None)
Quarter: 2010Q3

REPORT INFORMATION
  Report Type: 
  Country: None (occurrence: None)
  Receive Date: 20100722
  Receipt Date: 20080506
  Transmission Date: 20110219
  Serious: No
  Sender: FDA-Public Use
  Company Number: US-PFIZER INC-2008039302

PATIENT
  Sex: Male
  Weight: 82.1 kg

DRUGS (5)
  1. CHANTIX [Suspect]
     Indication: SMOKING CESSATION THERAPY
     Dates: start: 20080429
  2. VICODIN [Concomitant]
  3. METHADONE HCL [Concomitant]
  4. XANAX [Concomitant]
  5. ALBUTEROL [Concomitant]

REACTIONS (2)
  - FATIGUE [None]
  - NAUSEA [None]
